FAERS Safety Report 7332138-3 (Version None)
Quarter: 2011Q1

REPORT INFORMATION
  Report Type: 
  Country: None (occurrence: None)
  Receive Date: 20110304
  Receipt Date: 20110221
  Transmission Date: 20110831
  Serious: Yes (Other)
  Sender: FDA-Public Use
  Company Number: PHHY2011SK15742

PATIENT
  Age: 74 Year
  Sex: Female

DRUGS (1)
  1. ACLASTA [Suspect]
     Indication: OSTEOPOROSIS POSTMENOPAUSAL
     Dosage: 5 MG, UNK
     Dates: start: 20110218

REACTIONS (9)
  - CHROMATURIA [None]
  - BLOOD UREA DECREASED [None]
  - BLOOD CREATININE INCREASED [None]
  - GLOMERULAR FILTRATION RATE DECREASED [None]
  - RED BLOOD CELLS URINE POSITIVE [None]
  - PYREXIA [None]
  - PROTEIN URINE PRESENT [None]
  - VOMITING [None]
  - DIARRHOEA [None]
